FAERS Safety Report 4347838-7 (Version None)
Quarter: 2004Q2

REPORT INFORMATION
  Report Type: 
  Country: None (occurrence: None)
  Receive Date: 20040422
  Receipt Date: 20040407
  Transmission Date: 20050107
  Serious: Yes (Hospitalization)
  Sender: FDA-Public Use
  Company Number: 193010

PATIENT
  Age: 23 Year
  Sex: Female

DRUGS (2)
  1. AVONEX [Suspect]
     Indication: MULTIPLE SCLEROSIS
     Dosage: 30 MCG QW IM
     Route: 030
     Dates: start: 20030129, end: 20030901
  2. AVONEX [Suspect]
     Indication: MULTIPLE SCLEROSIS
     Dates: start: 20030901, end: 20040301

REACTIONS (10)
  - BRAIN STEM SYNDROME [None]
  - COAGULATION FACTOR DECREASED [None]
  - COLLAPSE OF LUNG [None]
  - DISEASE PROGRESSION [None]
  - DYSPHAGIA [None]
  - HAEMORRHAGE [None]
  - MULTIPLE SCLEROSIS [None]
  - NERVOUS SYSTEM DISORDER [None]
  - NEUROMYELITIS OPTICA [None]
  - PARAPARESIS [None]
